FAERS Safety Report 8784029 (Version 3)
Quarter: 2013Q1

REPORT INFORMATION
  Report Type: Spontaneous
  Country: US (occurrence: None)
  Receive Date: 20120829
  Receipt Date: 20121012
  Transmission Date: 20140127
  Serious: Yes (Hospitalization, Other)
  Sender: FDA-Public Use
  Company Number: 2012P1054802

PATIENT
  Age: 74 Year
  Sex: Male
  Weight: 63.5 kg

DRUGS (5)
  1. PEPCID TABLETS 20 MG (NO PREF. NAME) [Suspect]
     Indication: GASTROOESOPHAGEAL REFLUX DISEASE
     Route: 048
     Dates: start: 20120730
  2. PEPCID TABLETS 20 MG (NO PREF. NAME) [Suspect]
     Indication: PANCREATIC DISORDER
     Route: 048
     Dates: start: 20120730
  3. UNSPECIFIED PAIN MEDICATION (NO PREF. NAME) [Suspect]
     Indication: PAIN
  4. PHENOBARBITAL [Concomitant]
  5. MYSOLINE [Concomitant]

REACTIONS (6)
  - Drug ineffective [None]
  - Abdominal pain upper [None]
  - Feeling abnormal [None]
  - Blood test abnormal [None]
  - Feeling abnormal [None]
  - Abdominal pain [None]
